FAERS Safety Report 20514344 (Version 1)
Quarter: 2022Q1

REPORT INFORMATION
  Report Type: Spontaneous
  Country: US (occurrence: US)
  Receive Date: 20220224
  Receipt Date: 20220224
  Transmission Date: 20220423
  Serious: No
  Sender: FDA-Public Use
  Company Number: US-VYERA PHARMACEUTICALS, LLC-2021VYE00018

PATIENT
  Sex: Male
  Weight: 64.853 kg

DRUGS (9)
  1. DARAPRIM [Suspect]
     Active Substance: PYRIMETHAMINE
     Indication: Toxoplasmosis
     Dosage: 25 MG, 2X/DAY FOR 2 WEEKS
     Route: 048
     Dates: start: 20210411, end: 20210424
  2. DARAPRIM [Suspect]
     Active Substance: PYRIMETHAMINE
     Dosage: 25 MG, 1X/DAY
     Route: 048
     Dates: start: 20210425, end: 2021
  3. THYMOSIN A1 [Concomitant]
  4. MARINOL [Concomitant]
     Active Substance: DRONABINOL
  5. NYSTATIN [Concomitant]
     Active Substance: NYSTATIN
  6. SULFADIAZINE [Concomitant]
     Active Substance: SULFADIAZINE
  7. LEUCOVORIN [Concomitant]
     Active Substance: LEUCOVORIN
  8. PROBIOTICS NOS [Concomitant]
     Active Substance: PROBIOTICS NOS
  9. HOUTTUYNIA [Concomitant]
     Dosage: 1 DROPFUL, 2X/DAY

REACTIONS (4)
  - Insomnia [Recovering/Resolving]
  - Agitation [Recovered/Resolved]
  - Psychomotor hyperactivity [Recovered/Resolved]
  - Logorrhoea [Recovered/Resolved]

NARRATIVE: CASE EVENT DATE: 20210101
